FAERS Safety Report 6437732-X (Version None)
Quarter: 2009Q4

REPORT INFORMATION
  Report Type: 
  Country: None (occurrence: None)
  Receive Date: 20091109
  Receipt Date: 20091027
  Transmission Date: 20100525
  Serious: Yes (Other)
  Sender: FDA-Public Use
  Company Number: 2009AL006915

PATIENT
  Age: 82 Year
  Sex: Female

DRUGS (3)
  1. MIRTAZAPINE [Suspect]
     Dosage: 15 MG;QD;PO
     Route: 048
  2. DIAZEPAM [Suspect]
     Dosage: 2 MG;QID;PO
     Route: 048
  3. EBIXA [Concomitant]

REACTIONS (2)
  - SELF-INJURIOUS IDEATION [None]
  - SUICIDAL IDEATION [None]
